FAERS Safety Report 10043835 (Version 3)
Quarter: 2015Q1

REPORT INFORMATION
  Report Type: Report from Study
  Country: JP (occurrence: JP)
  Receive Date: 20140328
  Receipt Date: 20150213
  Transmission Date: 20150720
  Serious: No
  Sender: FDA-Public Use
  Company Number: JP-SA-THYM-1003857

PATIENT
  Age: 51 Year
  Sex: Male
  Weight: 61 kg

DRUGS (13)
  1. INTRALIPOS [Concomitant]
     Active Substance: SOYBEAN OIL
     Indication: ASCITES
     Dosage: UNK
     Dates: start: 20121011, end: 20121016
  2. CHLORPHENAMINE MALEATE [Concomitant]
     Active Substance: CHLORPHENIRAMINE MALEATE
     Indication: PROPHYLAXIS
     Dosage: UNK
     Dates: start: 20120530, end: 20120530
  3. INTRALIPOS [Concomitant]
     Active Substance: SOYBEAN OIL
     Indication: HYPOALBUMINAEMIA
     Dosage: UNK
     Dates: start: 20121011, end: 20121016
  4. VANCOMYCIN [Concomitant]
     Active Substance: VANCOMYCIN
     Indication: PROPHYLAXIS
     Dosage: UNK
     Dates: start: 20120530, end: 20120812
  5. METHYLPREDNISOLONE SODIUM SUCCINATE. [Concomitant]
     Active Substance: METHYLPREDNISOLONE SODIUM SUCCINATE
     Indication: PROPHYLAXIS
     Dosage: UNK
     Dates: start: 20120220, end: 20121024
  6. VORICONAZOLE. [Concomitant]
     Active Substance: VORICONAZOLE
     Indication: PROPHYLAXIS
     Dosage: UNK
     Dates: start: 20120530, end: 20120905
  7. MEROPENEM. [Concomitant]
     Active Substance: MEROPENEM
     Indication: PROPHYLAXIS
     Dosage: UNK
     Dates: start: 20120929
  8. INTRALIPOS [Concomitant]
     Active Substance: SOYBEAN OIL
     Indication: NON-HODGKIN^S LYMPHOMA
     Dosage: UNK
     Dates: start: 20121011, end: 20121016
  9. BAKTAR [Concomitant]
     Active Substance: SULFAMETHOXAZOLE\TRIMETHOPRIM
     Indication: PROPHYLAXIS
     Dosage: UNK
     Dates: start: 20120229, end: 20121001
  10. THYMOGLOBULINE [Suspect]
     Active Substance: LAPINE T-LYMPHOCYTE IMMUNE GLOBULIN
     Indication: BONE MARROW CONDITIONING REGIMEN
     Dosage: 157.5 MG, QD
     Route: 065
     Dates: start: 20120530, end: 20120530
  11. VANCOMYCIN [Concomitant]
     Active Substance: VANCOMYCIN
     Indication: PROPHYLAXIS
     Dosage: UNK
     Dates: start: 20120530, end: 20120812
  12. TACROLIMUS. [Concomitant]
     Active Substance: TACROLIMUS
     Indication: PROPHYLAXIS
     Dosage: UNK
     Dates: start: 20120531, end: 20120723
  13. VANCOMYCIN [Concomitant]
     Active Substance: VANCOMYCIN
     Indication: PROPHYLAXIS
     Dosage: UNK
     Dates: start: 20120530, end: 20120812

REACTIONS (10)
  - Atrial fibrillation [Not Recovered/Not Resolved]
  - Ulcer haemorrhage [Not Recovered/Not Resolved]
  - Retinopathy [Not Recovered/Not Resolved]
  - Ascites [Not Recovered/Not Resolved]
  - Renal impairment [Not Recovered/Not Resolved]
  - Hepatic function abnormal [Not Recovered/Not Resolved]
  - Sepsis [Not Recovered/Not Resolved]
  - Cytomegalovirus enterocolitis [Not Recovered/Not Resolved]
  - Clostridium difficile colitis [Recovered/Resolved]
  - Systemic mycosis [Recovered/Resolved]

NARRATIVE: CASE EVENT DATE: 20120627
